FAERS Safety Report 6875907-6 (Version None)
Quarter: 2010Q3

REPORT INFORMATION
  Report Type: 
  Country: None (occurrence: None)
  Receive Date: 20100723
  Receipt Date: 20100721
  Transmission Date: 20110219
  Serious: Yes (Death)
  Sender: FDA-Public Use
  Company Number: 2010SP037432

PATIENT
  Age: 81 Year
  Sex: Female
  Weight: 72 kg

DRUGS (5)
  1. TEMODAL [Suspect]
     Indication: CENTRAL NERVOUS SYSTEM LYMPHOMA
     Dosage: 280 MG;QD
     Dates: start: 20100227, end: 20100302
  2. TEMODAL [Suspect]
     Indication: CENTRAL NERVOUS SYSTEM LYMPHOMA
     Dosage: 280 MG;QD
     Dates: start: 20100326, end: 20100329
  3. TEMODAL [Suspect]
     Indication: CENTRAL NERVOUS SYSTEM LYMPHOMA
     Dosage: 280 MG;QD
     Dates: start: 20100423, end: 20100423
  4. TEMODAL [Suspect]
     Indication: CENTRAL NERVOUS SYSTEM LYMPHOMA
     Dosage: 280 MG;QD
     Dates: start: 20100425, end: 20100426
  5. METHOTREXATE [Suspect]
     Indication: CENTRAL NERVOUS SYSTEM LYMPHOMA

REACTIONS (6)
  - ACUTE MYOCARDIAL INFARCTION [None]
  - CARDIAC FAILURE [None]
  - CENTRAL NERVOUS SYSTEM LYMPHOMA [None]
  - HYPOKALAEMIA [None]
  - MALIGNANT NEOPLASM PROGRESSION [None]
  - STATUS EPILEPTICUS [None]
